FAERS Safety Report 7090239-1 (Version None)
Quarter: 2010Q4

REPORT INFORMATION
  Report Type: 
  Country: None (occurrence: None)
  Receive Date: 20101103
  Receipt Date: 20101103
  Transmission Date: 20110411
  Serious: No
  Sender: FDA-Public Use
  Company Number: None

PATIENT
  Age: 53 Year
  Sex: Male

DRUGS (5)
  1. AMPYRA [Suspect]
     Indication: MULTIPLE SCLEROSIS
     Dosage: 10MG DAILY ORALLY
     Route: 048
     Dates: start: 20100722, end: 20100901
  2. AMPYRA [Suspect]
  3. METHYLPREDNISOLONE [Concomitant]
  4. VICODIN [Concomitant]
  5. ALPRAZOLAM [Concomitant]

REACTIONS (3)
  - DYSPEPSIA [None]
  - INSOMNIA [None]
  - REFUSAL OF TREATMENT BY PATIENT [None]
